FAERS Safety Report 4881737-7 (Version None)
Quarter: 2006Q1

REPORT INFORMATION
  Report Type: 
  Country: None (occurrence: None)
  Receive Date: 20060116
  Receipt Date: 20051223
  Transmission Date: 20060701
  Serious: Yes (Hospitalization)
  Sender: FDA-Public Use
  Company Number: CH-ROCHE-429758

PATIENT
  Sex: Male
  Weight: 9 kg

DRUGS (9)
  1. TOREM [Suspect]
     Indication: DRUG USE FOR UNKNOWN INDICATION
     Route: 048
     Dates: start: 20050815
  2. DILATREND [Interacting]
     Indication: DRUG USE FOR UNKNOWN INDICATION
     Route: 048
     Dates: end: 20050825
  3. COVERSUM [Interacting]
     Indication: DRUG USE FOR UNKNOWN INDICATION
     Dosage: FORM: COMPRIMES.
     Route: 048
     Dates: end: 20050825
  4. MARCOUMAR [Concomitant]
     Route: 048
  5. ZOCOR [Concomitant]
     Route: 048
  6. ZYLORIC [Concomitant]
     Indication: GOUT
     Route: 048
  7. METFORMIN [Concomitant]
     Route: 048
  8. BECOZYM [Concomitant]
     Route: 048
  9. ACIDUM FOLICUM [Concomitant]
     Route: 048

REACTIONS (3)
  - CIRCULATORY COLLAPSE [None]
  - DRUG INTERACTION [None]
  - HYPOTENSION [None]
